FAERS Safety Report 14312341 (Version 1)
Quarter: 2017Q4

REPORT INFORMATION
  Report Type: Spontaneous
  Country: DE (occurrence: DE)
  Receive Date: 20171221
  Receipt Date: 20171221
  Transmission Date: 20180321
  Serious: Yes (Death, Life-Threatening, Hospitalization, Other)
  Sender: FDA-Public Use
  Company Number: PHHY2017DE190760

PATIENT
  Age: 22 Year
  Sex: Female

DRUGS (7)
  1. QUETIAPINE. [Suspect]
     Active Substance: QUETIAPINE
     Dosage: 600 MG, QD
     Route: 065
  2. LORAZEPAM. [Concomitant]
     Active Substance: LORAZEPAM
     Indication: SCHIZOPHRENIA
     Dosage: 2 MG, QD
     Route: 065
  3. LORAZEPAM. [Concomitant]
     Active Substance: LORAZEPAM
     Indication: OBSESSIVE THOUGHTS
     Dosage: 2 MG, QD
     Route: 065
  4. QUETIAPINE. [Suspect]
     Active Substance: QUETIAPINE
     Indication: DELUSION
     Dosage: 600 MG, QD
     Route: 065
  5. LORAZEPAM. [Concomitant]
     Active Substance: LORAZEPAM
     Indication: DELUSION
     Dosage: 2 MG, QD
     Route: 065
  6. QUETIAPINE. [Suspect]
     Active Substance: QUETIAPINE
     Indication: SCHIZOPHRENIA
     Dosage: 600 MG, QD
     Route: 065
  7. QUETIAPINE. [Suspect]
     Active Substance: QUETIAPINE
     Dosage: 600 MG, QD
     Route: 065

REACTIONS (18)
  - Tachypnoea [Fatal]
  - Hypoxia [Fatal]
  - Pain [Fatal]
  - Circulatory collapse [Fatal]
  - Tonsillitis [Fatal]
  - Pneumonia fungal [Fatal]
  - Hypotension [Fatal]
  - Hypotonia [Fatal]
  - Nasopharyngitis [Fatal]
  - Cardiopulmonary failure [Fatal]
  - Pharyngeal oedema [Fatal]
  - Multiple organ dysfunction syndrome [Fatal]
  - Body temperature increased [Fatal]
  - Metabolic acidosis [Fatal]
  - Pharyngitis [Fatal]
  - Agranulocytosis [Fatal]
  - Sepsis [Fatal]
  - Oropharyngeal pain [Fatal]
